FAERS Safety Report 4345798-6 (Version None)
Quarter: 2004Q2

REPORT INFORMATION
  Report Type: 
  Country: None (occurrence: None)
  Receive Date: 20040421
  Receipt Date: 20040407
  Transmission Date: 20050107
  Serious: Yes (Hospitalization)
  Sender: FDA-Public Use
  Company Number: 02P-144-0189390-00

PATIENT
  Age: 72 Year
  Sex: Female
  Weight: 70 kg

DRUGS (8)
  1. HUMIRA [Suspect]
     Indication: RHEUMATOID ARTHRITIS
     Dosage: SUBCUTANEOUS
     Route: 058
     Dates: start: 20011106, end: 20020307
  2. ASPIRIN [Concomitant]
  3. PERINDOPRIL [Concomitant]
  4. TORSEMIDE [Concomitant]
  5. FAMOTIDINE [Concomitant]
  6. ATOERASTOTINE [Concomitant]
  7. PIROXICAM [Concomitant]
  8. LACTULOSE [Concomitant]

REACTIONS (8)
  - ANAEMIA [None]
  - ASPERGILLOSIS [None]
  - DIARRHOEA [None]
  - NOSOCOMIAL INFECTION [None]
  - PNEUMONITIS [None]
  - PULMONARY OEDEMA [None]
  - PULMONARY TOXICITY [None]
  - THYROID NEOPLASM [None]
